FAERS Safety Report 13856308 (Version 2)
Quarter: 2017Q3

REPORT INFORMATION
  Report Type: Spontaneous
  Country: US (occurrence: US)
  Receive Date: 20170810
  Receipt Date: 20170817
  Transmission Date: 20171127
  Serious: No
  Sender: FDA-Public Use
  Company Number: US-OTSUKA-2017_017238

PATIENT
  Age: 55 Year
  Sex: Female

DRUGS (1)
  1. ABILIFY MAINTENA [Suspect]
     Active Substance: ARIPIPRAZOLE
     Indication: PRODUCT USED FOR UNKNOWN INDICATION
     Dosage: 300 MG, QM
     Route: 030
     Dates: start: 20170620, end: 20170718

REACTIONS (7)
  - Oral discomfort [Unknown]
  - Dyskinesia [Unknown]
  - Prescribed underdose [Unknown]
  - Crying [Unknown]
  - Akathisia [Unknown]
  - Lip disorder [Unknown]
  - Anxiety [Unknown]
